FAERS Safety Report 5306060-8 (Version None)
Quarter: 2007Q2

REPORT INFORMATION
  Report Type: 
  Country: None (occurrence: None)
  Receive Date: 20070424
  Receipt Date: 20060608
  Transmission Date: 20071010
  Serious: No
  Sender: FDA-Public Use
  Company Number: US-BRISTOL-MYERS SQUIBB COMPANY-13405949

PATIENT
  Age: 87 Year
  Sex: Female
  Weight: 69 kg

DRUGS (5)
  1. HYDREA [Suspect]
     Indication: ESSENTIAL THROMBOCYTHAEMIA
  2. SYNTHROID [Concomitant]
  3. COZAAR [Concomitant]
  4. MULTI-VITAMIN [Concomitant]
  5. CALCIUM + VITAMIN D [Concomitant]

REACTIONS (3)
  - PLATELET COUNT INCREASED [None]
  - RED BLOOD CELL COUNT INCREASED [None]
  - WHITE BLOOD CELL COUNT DECREASED [None]
